FAERS Safety Report 4557246-1 (Version None)
Quarter: 2005Q1

REPORT INFORMATION
  Report Type: 
  Country: None (occurrence: None)
  Receive Date: 20050118
  Receipt Date: 20050107
  Transmission Date: 20050727
  Serious: Yes (Hospitalization)
  Sender: FDA-Public Use
  Company Number: 061-0981-M0100624

PATIENT
  Age: 64 Year
  Sex: Male
  Weight: 59 kg

DRUGS (5)
  1. ATORVASTATIN (ATORVASTATIN) [Suspect]
     Indication: HYPERLIPIDAEMIA
     Dosage: SEE IMAGE, ORAL
     Route: 048
     Dates: start: 19990302, end: 19990427
  2. ATORVASTATIN (ATORVASTATIN) [Suspect]
     Indication: HYPERLIPIDAEMIA
     Dosage: SEE IMAGE, ORAL
     Route: 048
     Dates: start: 19990428
  3. ASPIRIN [Concomitant]
  4. ATENOLOL [Concomitant]
  5. PERINDOPRIL ERBUMINE (PERINDOPRIL ERBUMINE) [Concomitant]

REACTIONS (1)
  - NEPHROLITHIASIS [None]
